FAERS Safety Report 5535956-7 (Version None)
Quarter: 2007Q4

REPORT INFORMATION
  Report Type: 
  Country: None (occurrence: None)
  Receive Date: 20071206
  Receipt Date: 20071130
  Transmission Date: 20080405
  Serious: Yes (Other)
  Sender: FDA-Public Use
  Company Number: US-JNJFOC-20060400249

PATIENT
  Sex: Female

DRUGS (6)
  1. RISPERDAL [Suspect]
     Indication: HALLUCINATION
  2. SEROQUEL [Suspect]
     Indication: DRUG USE FOR UNKNOWN INDICATION
  3. VICODIN [Concomitant]
  4. TRAZODONE HCL [Concomitant]
  5. NORVASC [Concomitant]
  6. PRILOSEC [Concomitant]

REACTIONS (2)
  - GALACTORRHOEA [None]
  - TYPE 2 DIABETES MELLITUS [None]
